FAERS Safety Report 23689519 (Version 1)
Quarter: 2024Q1

REPORT INFORMATION
  Report Type: Spontaneous
  Country: IN (occurrence: IN)
  Receive Date: 20240331
  Receipt Date: 20240331
  Transmission Date: 20240409
  Serious: Yes (Other)
  Sender: FDA-Public Use
  Company Number: IN-STERISCIENCE B.V.-2024-ST-000330

PATIENT
  Age: 69 Year
  Sex: Male

DRUGS (1)
  1. GANCICLOVIR SODIUM [Suspect]
     Active Substance: GANCICLOVIR SODIUM
     Indication: Cytomegalovirus chorioretinitis
     Dosage: MULTIPLE IN HIS RIGHT EYE

REACTIONS (3)
  - Retinal toxicity [Unknown]
  - Retinal depigmentation [Unknown]
  - Off label use [Unknown]
